FAERS Safety Report 12349169 (Version 1)
Quarter: 2016Q2

REPORT INFORMATION
  Report Type: Spontaneous
  Country: US (occurrence: US)
  Receive Date: 20160509
  Receipt Date: 20160509
  Transmission Date: 20160815
  Serious: Yes (Other)
  Sender: FDA-Public Use
  Company Number: US-PRESTIGE BRANDS -1051736

PATIENT
  Age: 47 Year
  Sex: Female

DRUGS (1)
  1. GOODYS EXTRA STRENGTH [Suspect]
     Active Substance: ACETAMINOPHEN\ASPIRIN\CAFFEINE
     Indication: HEADACHE
     Route: 048

REACTIONS (5)
  - Impaired gastric emptying [Recovered/Resolved]
  - Overdose [Not Recovered/Not Resolved]
  - Gastric ulcer [Not Recovered/Not Resolved]
  - Dependence [Not Recovered/Not Resolved]
  - Nausea [Not Recovered/Not Resolved]
